FAERS Safety Report 9421911 (Version 1)
Quarter: 2013Q3

REPORT INFORMATION
  Report Type: Spontaneous
  Country: US (occurrence: None)
  Receive Date: 20130724
  Receipt Date: 20130724
  Transmission Date: 20140515
  Serious: Yes (Disabling)
  Sender: FDA-Public Use
  Company Number: None

PATIENT
  Age: 62 Year
  Sex: Female
  Weight: 49.9 kg

DRUGS (2)
  1. ZOLEDRONIC ACID [Suspect]
     Indication: ARTHRALGIA
     Dates: start: 20130404
  2. ZOLEDRONIC ACID [Suspect]
     Indication: OSTEOPOROSIS
     Dates: start: 20130404

REACTIONS (5)
  - Musculoskeletal stiffness [None]
  - Headache [None]
  - Pain in extremity [None]
  - Neck pain [None]
  - Malaise [None]
